FAERS Safety Report 17740980 (Version 1)
Quarter: 2020Q2

REPORT INFORMATION
  Report Type: Spontaneous
  Country: US (occurrence: US)
  Receive Date: 20200504
  Receipt Date: 20200504
  Transmission Date: 20200714
  Serious: No
  Sender: FDA-Public Use
  Company Number: US-BEH-2020116382

PATIENT
  Age: 74 Year
  Sex: Female

DRUGS (26)
  1. BENADRYL [Concomitant]
     Active Substance: DIPHENHYDRAMINE HYDROCHLORIDE
     Dosage: UNK
  2. DUONEB [Concomitant]
     Active Substance: ALBUTEROL SULFATE\IPRATROPIUM BROMIDE
  3. HIZENTRA [Suspect]
     Active Substance: HUMAN IMMUNOGLOBULIN G
     Dosage: UNK
     Route: 058
     Dates: start: 20200415, end: 20200415
  4. METFORMIN [Concomitant]
     Active Substance: METFORMIN HYDROCHLORIDE
  5. HIZENTRA [Suspect]
     Active Substance: HUMAN IMMUNOGLOBULIN G
     Dosage: UNK
     Route: 058
     Dates: start: 20200415, end: 20200415
  6. FOLIC ACID. [Concomitant]
     Active Substance: FOLIC ACID
  7. VITAMIN D3 [Concomitant]
     Active Substance: CHOLECALCIFEROL
  8. ELIQUIS [Concomitant]
     Active Substance: APIXABAN
  9. EPINEPHRINE. [Concomitant]
     Active Substance: EPINEPHRINE
  10. HIZENTRA [Suspect]
     Active Substance: HUMAN IMMUNOGLOBULIN G
     Indication: IMMUNODEFICIENCY
     Dosage: 12 GRAM, QW
     Route: 058
     Dates: start: 20181220
  11. ADVAIR HFA [Concomitant]
     Active Substance: FLUTICASONE PROPIONATE\SALMETEROL XINAFOATE
  12. LEVOTHYROXIN [Concomitant]
     Active Substance: LEVOTHYROXINE
  13. NEXIUM [Concomitant]
     Active Substance: ESOMEPRAZOLE MAGNESIUM
  14. HIZENTRA [Suspect]
     Active Substance: HUMAN IMMUNOGLOBULIN G
     Dosage: 12 GRAM, TOT
     Route: 058
     Dates: start: 20200415, end: 20200415
  15. FISH OIL [Concomitant]
     Active Substance: FISH OIL
  16. GLUCOSAMIN CHONDR [Concomitant]
  17. IRON [Concomitant]
     Active Substance: IRON
  18. MONTELUKAST [Concomitant]
     Active Substance: MONTELUKAST SODIUM
  19. POTASSIUM CHLORIDE. [Concomitant]
     Active Substance: POTASSIUM CHLORIDE
  20. ALBUTEROL [SALBUTAMOL] [Concomitant]
     Active Substance: ALBUTEROL
  21. IMODIUM A-D [Concomitant]
     Active Substance: LOPERAMIDE HYDROCHLORIDE
  22. LISINOPRIL. [Concomitant]
     Active Substance: LISINOPRIL
  23. PROBIOTICS NOS [Concomitant]
     Active Substance: PROBIOTICS NOS
  24. SINGULAIR [Concomitant]
     Active Substance: MONTELUKAST SODIUM
  25. FLONASE [Concomitant]
     Active Substance: FLUTICASONE PROPIONATE
  26. TRAMADOL HCL [Concomitant]
     Active Substance: TRAMADOL HYDROCHLORIDE

REACTIONS (1)
  - Urticaria [Not Recovered/Not Resolved]

NARRATIVE: CASE EVENT DATE: 20200415
